FAERS Safety Report 6380011-X (Version None)
Quarter: 2009Q3

REPORT INFORMATION
  Report Type: 
  Country: None (occurrence: None)
  Receive Date: 20090928
  Receipt Date: 20090917
  Transmission Date: 20100115
  Serious: Yes (Other)
  Sender: FDA-Public Use
  Company Number: US-ELI_LILLY_AND_COMPANY-US200909004647

PATIENT
  Age: 45 Year
  Sex: Female

DRUGS (1)
  1. ZYPREXA [Suspect]
     Dosage: 5 MG, UNK

REACTIONS (2)
  - ELECTROCARDIOGRAM QT PROLONGED [None]
  - SYNCOPE [None]
